FAERS Safety Report 6802657-4 (Version None)
Quarter: 2010Q2

REPORT INFORMATION
  Report Type: 
  Country: None (occurrence: None)
  Receive Date: 20100628
  Receipt Date: 20100626
  Transmission Date: 20101027
  Serious: Yes (Hospitalization)
  Sender: FDA-Public Use
  Company Number: PHHO2009TW01071

PATIENT
  Sex: Male
  Weight: 50.4 kg

DRUGS (1)
  1. AFINITOR [Suspect]
     Indication: PANCREATIC NEUROENDOCRINE TUMOUR
     Dosage: 10 MG DAILY
     Route: 048
     Dates: start: 20081210, end: 20090112

REACTIONS (9)
  - ASCITES [None]
  - ASTHENIA [None]
  - DECREASED APPETITE [None]
  - DIARRHOEA [None]
  - DYSPNOEA [None]
  - GENERALISED OEDEMA [None]
  - MALAISE [None]
  - OEDEMA PERIPHERAL [None]
  - SWELLING FACE [None]
